FAERS Safety Report 5127132-7 (Version None)
Quarter: 2006Q4

REPORT INFORMATION
  Report Type: 
  Country: None (occurrence: None)
  Receive Date: 20061013
  Receipt Date: 20061005
  Transmission Date: 20070319
  Serious: Yes (Hospitalization)
  Sender: FDA-Public Use
  Company Number: 2006AP04639

PATIENT
  Age: 79 Year
  Sex: Male

DRUGS (8)
  1. NAROPIN [Suspect]
  2. PROPOFOL [Suspect]
  3. CEPHALOTHIN SODIUM [Suspect]
  4. DESFLURANE [Suspect]
  5. FENTANYL [Suspect]
  6. GENTAMICIN SULFATE [Suspect]
  7. NAVOBAN [Suspect]
  8. MIDAZOLAM HYDROCHLORIDE [Concomitant]

REACTIONS (3)
  - AGGRESSION [None]
  - AGITATION [None]
  - CONFUSIONAL STATE [None]
